FAERS Safety Report 17501766 (Version 2)
Quarter: 2020Q1

REPORT INFORMATION
  Report Type: Spontaneous
  Country: US (occurrence: US)
  Receive Date: 20200305
  Receipt Date: 20200306
  Transmission Date: 20200409
  Serious: No
  Sender: FDA-Public Use
  Company Number: US-PFIZER INC-2020095645

PATIENT
  Sex: Female

DRUGS (1)
  1. ADVIL LIQUI-GELS [Suspect]
     Active Substance: IBUPROFEN
     Indication: INJURY
     Dosage: 400 MG, DAILY
     Dates: end: 20200302

REACTIONS (2)
  - Urticaria [Recovered/Resolved]
  - Drug hypersensitivity [Recovered/Resolved]
